FAERS Safety Report 17852740 (Version 1)
Quarter: 2020Q2

REPORT INFORMATION
  Report Type: Spontaneous
  Country: US (occurrence: US)
  Receive Date: 20200602
  Receipt Date: 20200602
  Transmission Date: 20200714
  Serious: No
  Sender: FDA-Public Use
  Company Number: US-FOUNDATIONCONSUMERHC-2019-US-023636

PATIENT
  Age: 30 Year
  Sex: Female
  Weight: 56.7 kg

DRUGS (7)
  1. AMBIEN [Concomitant]
     Active Substance: ZOLPIDEM TARTRATE
     Dosage: AS NEEDED
  2. KLONOPIN [Concomitant]
     Active Substance: CLONAZEPAM
  3. NORTRIPTYLINE [Concomitant]
     Active Substance: NORTRIPTYLINE
  4. FLORICET [Concomitant]
     Dosage: AS NEEDED
  5. ZANTEC [Concomitant]
     Dosage: RARELY
  6. TAKE ACTION [Suspect]
     Active Substance: LEVONORGESTREL
     Indication: POST COITAL CONTRACEPTION
     Dosage: 1.5 MG X 1 DOSE
     Route: 048
     Dates: start: 20191211, end: 20191211
  7. IRON [Concomitant]
     Active Substance: IRON
     Dosage: EVERY OTHER WEEK

REACTIONS (2)
  - Nausea [Recovered/Resolved]
  - Vomiting [Recovered/Resolved]

NARRATIVE: CASE EVENT DATE: 20191211
